FAERS Safety Report 8359889-6 (Version None)
Quarter: 2012Q2

REPORT INFORMATION
  Report Type: 
  Country: None (occurrence: None)
  Receive Date: 20120515
  Receipt Date: 20120510
  Transmission Date: 20120825
  Serious: Yes (Hospitalization)
  Sender: FDA-Public Use
  Company Number: FR-PFIZER INC-2012114061

PATIENT
  Age: 60 Year
  Sex: Male

DRUGS (4)
  1. AUGMENTIN [Suspect]
     Indication: INFECTION
     Dosage: 3 G, 3X/DAY
     Route: 048
     Dates: start: 20120410, end: 20120410
  2. CIPROFLOXACIN HYDROCHLORIDE [Suspect]
     Dosage: 750 MG, 2X/DAY
     Dates: start: 20120410, end: 20120410
  3. TAZOBACTAM [Suspect]
     Indication: INFECTION
     Dosage: 4 G, 4X/DAY
     Dates: start: 20120405, end: 20120410
  4. CIPROFLOXACIN HYDROCHLORIDE [Suspect]
     Indication: INFECTION
     Dosage: 400 MG, 3X/DAY
     Route: 042
     Dates: start: 20120405, end: 20120410

REACTIONS (2)
  - LIP OEDEMA [None]
  - FACE OEDEMA [None]
